FAERS Safety Report 5760395-3 (Version None)
Quarter: 2008Q2

REPORT INFORMATION
  Report Type: 
  Country: None (occurrence: None)
  Receive Date: 20080602
  Receipt Date: 20080521
  Transmission Date: 20081010
  Serious: Yes (Hospitalization)
  Sender: FDA-Public Use
  Company Number: GXKR2008GB04710

PATIENT
  Age: 90 Year
  Sex: Male

DRUGS (1)
  1. DOXAZOSIN MESYLATE [Suspect]
     Dosage: 16 MG, DAILY, ORAL
     Route: 048

REACTIONS (3)
  - HEART RATE DECREASED [None]
  - HYPOXIA [None]
  - MENTAL DISORDER [None]
